FAERS Safety Report 14836779 (Version 10)
Quarter: 2020Q4

REPORT INFORMATION
  Report Type: Report from Study
  Country: CA (occurrence: CA)
  Receive Date: 20180502
  Receipt Date: 20201231
  Transmission Date: 20210113
  Serious: Yes (Hospitalization, Other)
  Sender: FDA-Public Use
  Company Number: PHHY2018CA056316

PATIENT
  Age: 54 Year
  Sex: Female
  Weight: 85 kg

DRUGS (12)
  1. GABAPENTIN. [Concomitant]
     Active Substance: GABAPENTIN
     Indication: BACK PAIN
     Dosage: 600 MG, TID
     Route: 065
     Dates: start: 201509
  2. COSENTYX [Suspect]
     Active Substance: SECUKINUMAB
     Dosage: 300 MG, Q4W
     Route: 065
     Dates: start: 20180321, end: 20190215
  3. NAPROXEN. [Concomitant]
     Active Substance: NAPROXEN
     Indication: SCIATICA
     Dosage: 375 MG, PRN
     Route: 065
     Dates: start: 2014
  4. PREDNISONE. [Concomitant]
     Active Substance: PREDNISONE
     Indication: PRODUCT USED FOR UNKNOWN INDICATION
     Dosage: UNK
     Route: 065
     Dates: start: 20160218, end: 20160403
  5. COSENTYX [Suspect]
     Active Substance: SECUKINUMAB
     Indication: PSORIASIS
     Dosage: 300 MG, Q4W
     Route: 058
     Dates: start: 20160324, end: 20160421
  6. COSENTYX [Suspect]
     Active Substance: SECUKINUMAB
     Dosage: 300 MG, UNK
     Route: 058
     Dates: start: 20190326, end: 20200115
  7. ZOPICLONE [Concomitant]
     Active Substance: ZOPICLONE
     Indication: INSOMNIA
     Dosage: 7.5 MG, QD
     Route: 065
     Dates: start: 2014
  8. PREDNISONE. [Concomitant]
     Active Substance: PREDNISONE
     Dosage: UNK
     Route: 065
     Dates: start: 20160404, end: 20160503
  9. MIRTAZAPINE. [Concomitant]
     Active Substance: MIRTAZAPINE
     Indication: DEPRESSION
     Dosage: 15 MG, QD
     Route: 065
     Dates: start: 2013, end: 20170904
  10. PRISTIQ EXTENDED-RELEASE [Concomitant]
     Active Substance: DESVENLAFAXINE SUCCINATE
     Indication: DEPRESSION
     Dosage: 500 MG, QD
     Route: 065
     Dates: start: 2013, end: 20160521
  11. COSENTYX [Suspect]
     Active Substance: SECUKINUMAB
     Dosage: 300 MG, Q4W
     Route: 058
     Dates: start: 20160519, end: 20180124
  12. MINOCIN [Concomitant]
     Active Substance: MINOCYCLINE HYDROCHLORIDE
     Indication: FOLLICULITIS
     Dosage: 100 MG, QD
     Route: 065
     Dates: start: 20160518, end: 20160622

REACTIONS (9)
  - Otitis media [Recovered/Resolved with Sequelae]
  - Syncope [Recovered/Resolved]
  - Deep vein thrombosis [Recovered/Resolved]
  - Staphylococcal infection [Recovered/Resolved]
  - Deafness unilateral [Recovering/Resolving]
  - Otitis media [Recovered/Resolved with Sequelae]
  - Skin candida [Unknown]
  - Tympanic membrane perforation [Recovered/Resolved]
  - Ear infection [Recovered/Resolved]

NARRATIVE: CASE EVENT DATE: 20171201
